FAERS Safety Report 22061019 (Version 2)
Quarter: 2023Q1

REPORT INFORMATION
  Report Type: Report from Study
  Country: US (occurrence: US)
  Receive Date: 20230303
  Receipt Date: 20230309
  Transmission Date: 20230418
  Serious: No
  Sender: FDA-Public Use
  Company Number: US-002147023-NVSC2023US047377

PATIENT
  Age: 53 Year
  Sex: Female

DRUGS (1)
  1. COSENTYX [Suspect]
     Active Substance: SECUKINUMAB
     Indication: Psoriasis
     Dosage: 300 MG, QW
     Route: 058
     Dates: start: 20230222

REACTIONS (5)
  - Tongue disorder [Unknown]
  - Hypoaesthesia oral [Unknown]
  - Paraesthesia oral [Unknown]
  - Glossodynia [Unknown]
  - Tongue blistering [Unknown]

NARRATIVE: CASE EVENT DATE: 20230222
